FAERS Safety Report 6057683-2 (Version None)
Quarter: 2009Q1

REPORT INFORMATION
  Report Type: 
  Country: None (occurrence: None)
  Receive Date: 20090129
  Receipt Date: 20071204
  Transmission Date: 20090719
  Serious: No
  Sender: FDA-Public Use
  Company Number: A0698624A

PATIENT
  Age: 50 Year
  Sex: Female

DRUGS (8)
  1. MEPRON [Suspect]
     Dosage: 750MG TWICE PER DAY
     Route: 048
     Dates: start: 20070601, end: 20070627
  2. REVLIMID [Suspect]
     Indication: MULTIPLE MYELOMA
     Dosage: 10MG PER DAY
     Route: 048
     Dates: start: 20070601
  3. SEPTRA DS [Concomitant]
     Dates: start: 20070720
  4. DEXAMETHASONE [Concomitant]
  5. ACYCLOVIR [Concomitant]
  6. MULTI-VITAMINS [Concomitant]
  7. VITAMIN B-12 [Concomitant]
  8. CALCIUM [Concomitant]

REACTIONS (2)
  - RASH MACULO-PAPULAR [None]
  - RASH PRURITIC [None]
